FAERS Safety Report 4505148-9 (Version None)
Quarter: 2004Q4

REPORT INFORMATION
  Report Type: 
  Country: None (occurrence: None)
  Receive Date: 20041117
  Receipt Date: 20041117
  Transmission Date: 20050328
  Serious: Yes (Hospitalization)
  Sender: FDA-Public Use
  Company Number: None

PATIENT
  Age: 70 Year
  Sex: Male

DRUGS (9)
  1. ATENOLOL [Suspect]
     Indication: HYPERTENSION
     Dosage: 12.5 MG QD
     Dates: start: 20020901
  2. ROFECOXIB [Concomitant]
  3. LOVASTATIN [Concomitant]
  4. PAROXETINE HCL [Concomitant]
  5. FINASTORIDE [Concomitant]
  6. GLYBURIDE [Concomitant]
  7. ISOSORBIDE [Concomitant]
  8. TERAZOSIN HCL [Concomitant]
  9. OMEPRAZOLE [Concomitant]

REACTIONS (2)
  - BRADYCARDIA [None]
  - SYNCOPE [None]
